FAERS Safety Report 13030220 (Version 1)
Quarter: 2016Q4

REPORT INFORMATION
  Report Type: Spontaneous
  Country: US (occurrence: US)
  Receive Date: 20161215
  Receipt Date: 20161215
  Transmission Date: 20170207
  Serious: Yes (Other)
  Sender: FDA-Public Use
  Company Number: ALCN2016US008777

PATIENT
  Age: 71 Year
  Sex: Male

DRUGS (1)
  1. ATROPINE SULFATE. [Suspect]
     Active Substance: ATROPINE SULFATE
     Indication: IRIDOCYCLITIS
     Dosage: UNK
     Route: 047

REACTIONS (1)
  - Urinary retention [Unknown]
